FAERS Safety Report 7592416-X (Version None)
Quarter: 2011Q2

REPORT INFORMATION
  Report Type: 
  Country: None (occurrence: None)
  Receive Date: 20110628
  Receipt Date: 20110614
  Transmission Date: 20111010
  Serious: Yes (Other)
  Sender: FDA-Public Use
  Company Number: RB-22550-2011

PATIENT
  Sex: Female

DRUGS (4)
  1. LEVOTHYROXINE [Concomitant]
  2. MULTI-VITAMINS [Concomitant]
  3. MUCINEX [Suspect]
     Indication: RHINORRHOEA
     Dosage: 1200 MG QD, TWO TABLETS TAKEN 15 HOURS APART OVER 2 DAYS ORAL
     Route: 048
  4. GARLIC [Concomitant]

REACTIONS (9)
  - DIZZINESS [None]
  - VISION BLURRED [None]
  - NERVOUSNESS [None]
  - SYNCOPE [None]
  - ASTHENIA [None]
  - FATIGUE [None]
  - CHILLS [None]
  - NAUSEA [None]
  - DISTURBANCE IN ATTENTION [None]
